FAERS Safety Report 24902632 (Version 1)
Quarter: 2025Q1

REPORT INFORMATION
  Report Type: Spontaneous
  Country: FR (occurrence: FR)
  Receive Date: 20250130
  Receipt Date: 20250130
  Transmission Date: 20250409
  Serious: Yes (Other)
  Sender: ALEXION PHARMACEUTICALS
  Company Number: FR-ASTRAZENECA-202501GLO023402FR

PATIENT
  Age: 18 Year

DRUGS (4)
  1. QUETIAPINE FUMARATE [Suspect]
     Active Substance: QUETIAPINE FUMARATE
     Indication: Psychiatric decompensation
     Dosage: 600 MILLIGRAM, QD
  2. LOXAPINE SUCCINATE [Suspect]
     Active Substance: LOXAPINE SUCCINATE
     Indication: Psychiatric decompensation
     Dosage: 75 MILLIGRAM, QD
  3. DIAZEPAM [Concomitant]
     Active Substance: DIAZEPAM
     Dosage: 10 MILLIGRAM, TID
     Route: 065
  4. CYAMEMAZINE [Concomitant]
     Active Substance: CYAMEMAZINE
     Dosage: 25 MILLIGRAM, TID
     Route: 065

REACTIONS (3)
  - Hepatic cytolysis [Recovered/Resolved]
  - Hyperprolactinaemia [Recovering/Resolving]
  - Galactorrhoea [Recovering/Resolving]
